FAERS Safety Report 4819571-6 (Version None)
Quarter: 2005Q4

REPORT INFORMATION
  Report Type: 
  Country: None (occurrence: None)
  Receive Date: 20051102
  Receipt Date: 20051010
  Transmission Date: 20060501
  Serious: Yes (Life-Threatening)
  Sender: FDA-Public Use
  Company Number: AND_0224_2005

PATIENT
  Sex: Female

DRUGS (1)
  1. FORTAMET [Suspect]
     Indication: DRUG EFFECT INCREASED
     Dosage: 1000 MG QDAY PO
     Route: 048

REACTIONS (3)
  - FOREIGN BODY TRAUMA [None]
  - LARYNGEAL OBSTRUCTION [None]
  - PHARMACEUTICAL PRODUCT COMPLAINT [None]
